FAERS Safety Report 10465920 (Version 4)
Quarter: 2014Q4

REPORT INFORMATION
  Report Type: Spontaneous
  Country: JP (occurrence: JP)
  Receive Date: 20140922
  Receipt Date: 20141030
  Transmission Date: 20150528
  Serious: Yes (Hospitalization)
  Sender: FDA-Public Use
  Company Number: JP-TAKEDA-2014TJP012491

PATIENT
  Age: 73 Year
  Sex: Female
  Weight: 42.6 kg

DRUGS (11)
  1. CARNACULIN                         /00088101/ [Concomitant]
     Dosage: 25 IU, TID
     Route: 048
  2. URSO [Concomitant]
     Active Substance: URSODIOL
     Indication: CHOLELITHIASIS
     Dosage: 200 MG, BID
     Route: 048
     Dates: start: 20080318
  3. ASPARA-CA [Concomitant]
     Active Substance: CALCIUM ASPARTATE
     Dosage: 200 MG, QD
     Route: 048
  4. CONIEL [Concomitant]
     Active Substance: BENIDIPINE HYDROCHLORIDE
     Indication: HYPERTENSION
     Dosage: 4 MG, QD
     Route: 048
     Dates: start: 20050113
  5. NEXIUM [Concomitant]
     Active Substance: ESOMEPRAZOLE MAGNESIUM
     Dosage: 20 MG, QD
     Route: 048
  6. NESINA [Suspect]
     Active Substance: ALOGLIPTIN BENZOATE
     Indication: DIABETES MELLITUS
     Dosage: 6.25 MG, QD
     Route: 048
     Dates: start: 20140703, end: 20140827
  7. BAYASPIRIN [Concomitant]
     Active Substance: ASPIRIN
     Dosage: 100 MG, QD
     Route: 048
  8. MEVALOTIN [Concomitant]
     Active Substance: PRAVASTATIN SODIUM
     Indication: DYSLIPIDAEMIA
     Dosage: 10 MG, QD
     Route: 048
     Dates: start: 20070625
  9. ADONA                              /00056903/ [Concomitant]
     Active Substance: CARBAZOCHROME SODIUM SULFONATE
     Dosage: 30 MG, TID
     Route: 048
  10. SEIBULE [Concomitant]
     Active Substance: MIGLITOL
     Indication: DIABETES MELLITUS
     Dosage: 50 MG, TID
     Route: 048
     Dates: start: 20140703, end: 20140827
  11. VITAMIN D AND ANALOGUES [Concomitant]
     Dosage: 0.75 ?G, QD
     Route: 048

REACTIONS (1)
  - Hepatic function abnormal [Recovering/Resolving]

NARRATIVE: CASE EVENT DATE: 20140827
